FAERS Safety Report 18792535 (Version 3)
Quarter: 2021Q2

REPORT INFORMATION
  Report Type: Spontaneous
  Country: CA (occurrence: CA)
  Receive Date: 20210127
  Receipt Date: 20210510
  Transmission Date: 20210717
  Serious: Yes (Other)
  Sender: FDA-Public Use
  Company Number: CA-BIOVITRUM-2021CA0770

PATIENT
  Age: 3 Year
  Sex: Male

DRUGS (1)
  1. KINERET [Suspect]
     Active Substance: ANAKINRA
     Indication: AUTOINFLAMMATORY DISEASE
     Dates: start: 201612, end: 201905

REACTIONS (3)
  - Interstitial lung disease [Unknown]
  - Off label use [Recovered/Resolved]
  - Clubbing [Unknown]

NARRATIVE: CASE EVENT DATE: 201612
